FAERS Safety Report 11572600 (Version 2)
Quarter: 2015Q4

REPORT INFORMATION
  Report Type: Spontaneous
  Country: US (occurrence: US)
  Receive Date: 20150916
  Receipt Date: 20151027
  Transmission Date: 20160304
  Serious: No
  Sender: FDA-Public Use
  Company Number: US-ELI_LILLY_AND_COMPANY-US200910003667

PATIENT
  Sex: Female

DRUGS (4)
  1. FORTEO [Suspect]
     Active Substance: TERIPARATIDE
     Indication: OSTEOPOROSIS
     Dosage: 20 UG, DAILY (1/D)
     Dates: start: 200907
  2. FORTEO [Suspect]
     Active Substance: TERIPARATIDE
     Dosage: 20 UG, DAILY (1/D)
  3. FORTEO [Suspect]
     Active Substance: TERIPARATIDE
     Dosage: 20 UG, DAILY (1/D)
  4. FORTEO [Suspect]
     Active Substance: TERIPARATIDE
     Dosage: 20 UG, DAILY (1/D)

REACTIONS (12)
  - Inflammation [Recovered/Resolved]
  - Anxiety [Not Recovered/Not Resolved]
  - Exposure to toxic agent [Recovering/Resolving]
  - Blister [Recovering/Resolving]
  - Pollakiuria [Not Recovered/Not Resolved]
  - Rash pruritic [Recovering/Resolving]
  - Pain [Recovering/Resolving]
  - Contusion [Unknown]
  - Fall [Unknown]
  - Peripheral swelling [Unknown]
  - Blood potassium increased [Unknown]
  - Musculoskeletal pain [Recovering/Resolving]

NARRATIVE: CASE EVENT DATE: 2009
